FAERS Safety Report 14490435 (Version 2)
Quarter: 2018Q1

REPORT INFORMATION
  Report Type: Spontaneous
  Country: DE (occurrence: DE)
  Receive Date: 20180206
  Receipt Date: 20180322
  Transmission Date: 20180509
  Serious: Yes (Death, Hospitalization, Congenital Anomaly, Other)
  Sender: FDA-Public Use
  Company Number: DE-SUN PHARMACEUTICAL INDUSTRIES LTD-2018RR-162502

PATIENT
  Age: 52 Year
  Sex: Female
  Weight: 66 kg

DRUGS (28)
  1. IRINOTECAN [Suspect]
     Active Substance: IRINOTECAN
     Indication: COLORECTAL CANCER
     Dosage: 215 MG, UNK
     Route: 042
     Dates: start: 20160908, end: 20160908
  2. IRINOTECAN [Suspect]
     Active Substance: IRINOTECAN
     Dosage: 220 MG, UNK
     Route: 042
     Dates: start: 20150626, end: 20150626
  3. FOLINIC ACID [Suspect]
     Active Substance: LEUCOVORIN
     Dosage: 330 MG, UNK
     Route: 042
     Dates: start: 20150608, end: 20150608
  4. FOLINIC ACID [Suspect]
     Active Substance: LEUCOVORIN
     Dosage: 600 MG, UNK
     Route: 042
     Dates: start: 20151126, end: 20151126
  5. 5-FLUOROURACIL [Suspect]
     Active Substance: FLUOROURACIL
     Dosage: 3550 MG, UNK
     Route: 042
     Dates: start: 20160908, end: 20160909
  6. FOLINIC ACID [Suspect]
     Active Substance: LEUCOVORIN
     Dosage: 590 MG, UNK
     Route: 042
     Dates: start: 20160908, end: 20160908
  7. FOLINIC ACID [Suspect]
     Active Substance: LEUCOVORIN
     Indication: COLORECTAL CANCER
     Dosage: 265 MG, UNK
     Route: 042
     Dates: start: 20150626, end: 20150730
  8. IRINOTECAN [Suspect]
     Active Substance: IRINOTECAN
     Dosage: 275 MG, UNK
     Route: 042
     Dates: start: 20150428, end: 20150526
  9. FOLINIC ACID [Suspect]
     Active Substance: LEUCOVORIN
     Dosage: 635 MG, UNK
     Route: 042
     Dates: start: 20151210, end: 20160121
  10. 5-FLUOROURACIL [Suspect]
     Active Substance: FLUOROURACIL
     Dosage: 600 MG, UNK
     Route: 040
     Dates: start: 20151126, end: 20151126
  11. CLEXANE [Concomitant]
     Active Substance: ENOXAPARIN SODIUM
     Indication: THROMBOSIS PROPHYLAXIS
     Route: 058
     Dates: start: 20150427
  12. IRINOTECAN [Suspect]
     Active Substance: IRINOTECAN
     Dosage: UNK
     Route: 042
     Dates: end: 20150630
  13. AVASTIN [Suspect]
     Active Substance: BEVACIZUMAB
     Indication: COLORECTAL CANCER
     Dosage: 330 MG, UNK
     Route: 042
     Dates: start: 20150428
  14. AVASTIN [Suspect]
     Active Substance: BEVACIZUMAB
     Dosage: 230 MG, UNK
     Route: 042
     Dates: start: 20160908
  15. FOLINIC ACID [Suspect]
     Active Substance: LEUCOVORIN
     Dosage: DOSAGES BETWEEN 255 MG AND 645 MG
     Route: 042
     Dates: end: 20160630
  16. GRANOCYTE [Concomitant]
     Active Substance: LENOGRASTIM
     Indication: NEUTROPENIA
     Route: 058
     Dates: start: 20150615, end: 20150810
  17. OXALIPLATIN. [Suspect]
     Active Substance: OXALIPLATIN
     Dosage: 110-140
     Route: 042
     Dates: start: 20150428, end: 20150609
  18. IRINOTECAN [Suspect]
     Active Substance: IRINOTECAN
     Dosage: 270 MG, UNK
     Route: 042
     Dates: start: 20150608, end: 20150608
  19. AVASTIN [Suspect]
     Active Substance: BEVACIZUMAB
     Dosage: 230 MG, UNK
     Route: 042
     Dates: start: 20160630
  20. 5-FLUOROURACIL [Suspect]
     Active Substance: FLUOROURACIL
     Indication: PRODUCT USED FOR UNKNOWN INDICATION
     Dosage: 5345 MG, UNK
     Route: 042
     Dates: start: 20150428, end: 20150430
  21. OXALIPLATIN. [Suspect]
     Active Substance: OXALIPLATIN
     Dosage: 110 MG, UNK
     Route: 042
     Dates: start: 20150814, end: 20150925
  22. IRINOTECAN [Suspect]
     Active Substance: IRINOTECAN
     Dosage: 210 MG, UNK
     Route: 042
     Dates: start: 20150813, end: 20151008
  23. IRINOTECAN [Suspect]
     Active Substance: IRINOTECAN
     Indication: PRODUCT USED FOR UNKNOWN INDICATION
     Dosage: 222 MG, UNK
     Route: 042
     Dates: start: 20150713, end: 20150730
  24. AVASTIN [Suspect]
     Active Substance: BEVACIZUMAB
     Dosage: 280 MG, UNK
     Route: 042
     Dates: start: 20160107
  25. FOLINIC ACID [Suspect]
     Active Substance: LEUCOVORIN
     Dosage: 255 MG, UNK
     Route: 042
     Dates: start: 20150813, end: 20151008
  26. 5-FLUOROURACIL [Suspect]
     Active Substance: FLUOROURACIL
     Indication: COLORECTAL CANCER
     Dosage: 625 MG, UNK
     Route: 040
     Dates: start: 20160428, end: 20160428
  27. OXALIPLATIN. [Suspect]
     Active Substance: OXALIPLATIN
     Indication: COLORECTAL CANCER
     Dosage: 115 MG, UNK
     Route: 042
     Dates: start: 20150627, end: 20150731
  28. FOLINIC ACID [Suspect]
     Active Substance: LEUCOVORIN
     Dosage: 335 MG, UNK
     Route: 042
     Dates: start: 20150428, end: 20150526

REACTIONS (10)
  - Vomiting [Fatal]
  - Mucosal inflammation [Fatal]
  - Cystitis haemorrhagic [Fatal]
  - Off label use [Fatal]
  - Bladder tamponade [Fatal]
  - Inappropriate schedule of drug administration [Fatal]
  - Metastases to central nervous system [Fatal]
  - Proteinuria [Fatal]
  - Metastases to meninges [Fatal]
  - Cystitis radiation [Fatal]

NARRATIVE: CASE EVENT DATE: 20160107
